FAERS Safety Report 23438436 (Version 1)
Quarter: 2024Q1

REPORT INFORMATION
  Report Type: Spontaneous
  Country: EU (occurrence: EU)
  Receive Date: 20240124
  Receipt Date: 20240124
  Transmission Date: 20240410
  Serious: Yes (Other)
  Sender: FDA-Public Use
  Company Number: EU-ETHYPHARM-202001545

PATIENT

DRUGS (6)
  1. MORPHINE SULFATE [Suspect]
     Active Substance: MORPHINE SULFATE
     Indication: Drug withdrawal maintenance therapy
     Dosage: 200-300 MG DAILY
  2. MORPHINE SULFATE [Suspect]
     Active Substance: MORPHINE SULFATE
     Indication: Drug withdrawal maintenance therapy
     Dates: start: 2002
  3. MORPHINE SULFATE [Suspect]
     Active Substance: MORPHINE SULFATE
     Indication: Drug withdrawal maintenance therapy
     Dosage: 100 MG DISSOLVED IN 0.8 ML OF WATER AT 40 TO 50 DEGREES CELSIUS
     Route: 042
     Dates: start: 2004
  4. MORPHINE SULFATE [Suspect]
     Active Substance: MORPHINE SULFATE
     Indication: Drug withdrawal maintenance therapy
     Route: 030
  5. MORPHINE SULFATE [Suspect]
     Active Substance: MORPHINE SULFATE
     Indication: Drug withdrawal maintenance therapy
     Route: 058
  6. MORPHINE SULFATE [Suspect]
     Active Substance: MORPHINE SULFATE
     Indication: Drug abuse
     Route: 065

REACTIONS (13)
  - Venous injury [Unknown]
  - Intentional product use issue [Unknown]
  - Intentional product misuse [Unknown]
  - Intentional product use issue [Unknown]
  - Off label use [Unknown]
  - Hot flush [Recovered/Resolved]
  - Hyperhidrosis [Recovered/Resolved]
  - Headache [Unknown]
  - Drug diversion [Unknown]
  - Drug abuse [Unknown]
  - Drug dependence [Unknown]
  - Pharmaceutical nomadism [Unknown]
  - Loss of libido [Unknown]
